FAERS Safety Report 10931631 (Version 1)
Quarter: 2015Q1

REPORT INFORMATION
  Report Type: Spontaneous
  Country: US (occurrence: US)
  Receive Date: 20150319
  Receipt Date: 20150319
  Transmission Date: 20150721
  Serious: No
  Sender: FDA-Public Use
  Company Number: US-BAUSCH-BL-2014-010633

PATIENT
  Sex: Female
  Weight: 63.49 kg

DRUGS (1)
  1. TRETINOIN CREAM 0.025% [Suspect]
     Active Substance: TRETINOIN
     Indication: SKIN WRINKLING
     Dosage: APPLY PEA SIZE AT BEDTIME
     Route: 061
     Dates: start: 20140912, end: 20141204

REACTIONS (1)
  - Drug ineffective [Unknown]
